FAERS Safety Report 9231089 (Version 1)
Quarter: 2013Q1

REPORT INFORMATION
  Report Type: Spontaneous
  Country: US (occurrence: None)
  Receive Date: 20121031
  Receipt Date: 20121031
  Transmission Date: 20140127
  Serious: No
  Sender: FDA-Public Use
  Company Number: PHEH2012US014659

PATIENT
  Age: 35 Year
  Sex: Female

DRUGS (3)
  1. GILENYA [Suspect]
     Indication: MULTIPLE SCLEROSIS
     Dosage: 0.5 MG, QD, ORAL
     Route: 048
     Dates: start: 20120709
  2. LYRICA (PREGAMBLIN) [Concomitant]
  3. TOPAMAX (TOPIRAMATE) [Concomitant]

REACTIONS (5)
  - Contusion [None]
  - Stress [None]
  - Pain in extremity [None]
  - Depression [None]
  - Headache [None]
